FAERS Safety Report 9463007 (Version 2)
Quarter: 2013Q3

REPORT INFORMATION
  Report Type: Spontaneous
  Country: JP (occurrence: JP)
  Receive Date: 20130816
  Receipt Date: 20130820
  Transmission Date: 20140515
  Serious: Yes (Death, Other)
  Sender: FDA-Public Use
  Company Number: PHHY2013JP088419

PATIENT
  Sex: Female

DRUGS (7)
  1. WARFARIN [Suspect]
     Dosage: 3 MG/DAY
  2. WARFARIN [Interacting]
     Dosage: 2 MG/DAY
  3. CARERAM [Interacting]
     Dosage: 25 MG/DAY
  4. CARERAM [Interacting]
     Dosage: 50 MG/DAY
  5. SULFASALAZINE [Concomitant]
     Indication: RHEUMATOID ARTHRITIS
  6. TACROLIMUS [Concomitant]
     Indication: RHEUMATOID ARTHRITIS
  7. PREDNISOLONE [Concomitant]
     Indication: RHEUMATOID ARTHRITIS

REACTIONS (4)
  - Pulmonary alveolar haemorrhage [Fatal]
  - Dyspnoea [Fatal]
  - International normalised ratio increased [Recovering/Resolving]
  - Drug interaction [Unknown]
